FAERS Safety Report 9496245 (Version 1)
Quarter: 2013Q3

REPORT INFORMATION
  Report Type: Spontaneous
  Country: GB (occurrence: None)
  Receive Date: 20130829
  Receipt Date: 20130829
  Transmission Date: 20140515
  Serious: Yes (Hospitalization)
  Sender: FDA-Public Use
  Company Number: AUR-APL-2013-06985

PATIENT
  Age: 57 Year
  Sex: Male
  Weight: 71.4 kg

DRUGS (3)
  1. AMLODIPINE (AMLODIPINE) [Suspect]
     Indication: HYPERTENSION
  2. LISINOPRIL (LISINOPRIL) [Suspect]
     Indication: HYPERTENSION
  3. DOXAZOSIN (DOXAZOSIN) [Suspect]
     Indication: HYPERTENSION
     Dosage: TWICE (4 MG), UNKNOWN
     Dates: start: 201207

REACTIONS (7)
  - Rash [None]
  - Vomiting [None]
  - Heart rate decreased [None]
  - Diarrhoea [None]
  - Paraesthesia [None]
  - Heart rate irregular [None]
  - Decreased appetite [None]
